FAERS Safety Report 4750568-0 (Version None)
Quarter: 2005Q3

REPORT INFORMATION
  Report Type: 
  Country: None (occurrence: None)
  Receive Date: 20050823
  Receipt Date: 20050810
  Transmission Date: 20060218
  Serious: Yes (Hospitalization)
  Sender: FDA-Public Use
  Company Number: PHHO2005JP12719

PATIENT
  Age: 77 Year
  Sex: Male

DRUGS (8)
  1. DIOVAN [Suspect]
     Indication: HYPERTENSION
     Dosage: 80 MG, QD
     Route: 048
     Dates: start: 20030412
  2. ALLOPURINOL [Concomitant]
     Indication: HYPERURICAEMIA
  3. COMELIAN [Concomitant]
     Indication: ANGINA PECTORIS
  4. HERBESSER [Concomitant]
  5. NEOPHAGEN [Concomitant]
     Indication: HEPATITIS
  6. CONIEL [Concomitant]
     Indication: HYPERTENSION
  7. ZANTAC [Concomitant]
     Indication: GASTRITIS
  8. MEVALOTIN [Concomitant]
     Indication: HYPERCHOLESTEROLAEMIA

REACTIONS (2)
  - ANGINA PECTORIS [None]
  - CORONARY ARTERY STENOSIS [None]
